FAERS Safety Report 21555838 (Version 3)
Quarter: 2022Q4

REPORT INFORMATION
  Report Type: Spontaneous
  Country: FR (occurrence: FR)
  Receive Date: 20221104
  Receipt Date: 20221126
  Transmission Date: 20230113
  Serious: Yes (Other)
  Sender: FDA-Public Use
  Company Number: None

PATIENT
  Age: 65 Year
  Sex: Male
  Weight: 77 kg

DRUGS (5)
  1. VALACYCLOVIR HYDROCHLORIDE [Suspect]
     Active Substance: VALACYCLOVIR HYDROCHLORIDE
     Indication: Prophylaxis
     Dosage: FREQUENCY TIME : 12 HOURS, DURATION: 17 DAYS, UNIT DOSE: 500 MG
     Route: 065
     Dates: start: 20220902, end: 20220919
  2. VALACYCLOVIR HYDROCHLORIDE [Suspect]
     Active Substance: VALACYCLOVIR HYDROCHLORIDE
     Dosage: FREQUENCY TIME : 12 HOURS, UNIT DOSE: 500 MG,THERAPY END DATE: NASK
     Dates: start: 20220929
  3. VALACYCLOVIR HYDROCHLORIDE [Suspect]
     Active Substance: VALACYCLOVIR HYDROCHLORIDE
     Dosage: FREQUENCY TIME : 12 HOURS, DURATION: 5 MONTHS, UNIT DOSE: 500 MG
     Dates: start: 202112, end: 202205
  4. BACTRIM [Suspect]
     Active Substance: SULFAMETHOXAZOLE\TRIMETHOPRIM
     Indication: Prophylaxis
     Dosage: 1 TABLET 3 TIMES A WEEK, FREQUENCY TIME : 2 DAYS, DURATION: 3 MONTHS, UNIT DOSE: 1 DF
     Dates: start: 202203, end: 202205
  5. BACTRIM [Suspect]
     Active Substance: SULFAMETHOXAZOLE\TRIMETHOPRIM
     Dosage: 1 TABLET 3 TIMES A WEEK, FREQUENCY TIME : 2 DAYS, UNIT DOSE: 1 DF
     Dates: start: 20220902, end: 202209

REACTIONS (1)
  - Toxic skin eruption [Recovering/Resolving]

NARRATIVE: CASE EVENT DATE: 20220909
